FAERS Safety Report 14239448 (Version 1)
Quarter: 2017Q4

REPORT INFORMATION
  Report Type: Spontaneous
  Country: FR (occurrence: FR)
  Receive Date: 20171130
  Receipt Date: 20171130
  Transmission Date: 20180321
  Serious: Yes (Hospitalization)
  Sender: FDA-Public Use
  Company Number: FR-MYLANLABS-2017M1074598

PATIENT
  Age: 58 Year
  Sex: Male

DRUGS (5)
  1. NALTREXONE [Interacting]
     Active Substance: NALTREXONE
     Indication: PRODUCT USED FOR UNKNOWN INDICATION
     Dosage: 50MG
     Route: 065
  2. BUPRENORPHINE. [Interacting]
     Active Substance: BUPRENORPHINE
     Dosage: 8MG
     Route: 065
  3. DIAZEPAM. [Concomitant]
     Active Substance: DIAZEPAM
     Indication: PRODUCT USED FOR UNKNOWN INDICATION
     Dosage: MAXIMUM DOSE 20MG/D
     Route: 065
  4. BUPRENORPHINE. [Suspect]
     Active Substance: BUPRENORPHINE
     Indication: PRODUCT USED FOR UNKNOWN INDICATION
     Dosage: 16MG/D, LATER RECEIVED 8MG
     Route: 065
  5. ESCITALOPRAM [Concomitant]
     Active Substance: ESCITALOPRAM OXALATE
     Indication: PRODUCT USED FOR UNKNOWN INDICATION
     Dosage: 10MG/D
     Route: 065

REACTIONS (3)
  - Drug withdrawal syndrome [Recovered/Resolved]
  - Accidental exposure to product [Recovered/Resolved]
  - Drug interaction [Recovered/Resolved]
